FAERS Safety Report 5138433-0 (Version None)
Quarter: 2006Q4

REPORT INFORMATION
  Report Type: 
  Country: None (occurrence: None)
  Receive Date: 20061030
  Receipt Date: 20060223
  Transmission Date: 20070319
  Serious: No
  Sender: FDA-Public Use
  Company Number: US-GLAXOSMITHKLINE-A0594951A

PATIENT
  Age: 69 Year
  Sex: Female

DRUGS (5)
  1. ADVAIR HFA [Suspect]
     Indication: CHRONIC OBSTRUCTIVE PULMONARY DISEASE
     Dosage: 1PUFF VARIABLE DOSE
     Route: 055
  2. COMBIVENT [Concomitant]
  3. SYNTHROID [Concomitant]
  4. ALPRAZOLAM [Concomitant]
  5. LIDODERM [Concomitant]

REACTIONS (3)
  - EPISTAXIS [None]
  - MYALGIA [None]
  - RHINITIS [None]
